FAERS Safety Report 4728693-X (Version None)
Quarter: 2005Q3

REPORT INFORMATION
  Report Type: 
  Country: None (occurrence: None)
  Receive Date: 20050727
  Receipt Date: 20050715
  Transmission Date: 20060218
  Serious: Yes (Hospitalization, Other)
  Sender: FDA-Public Use
  Company Number: US142917

PATIENT
  Age: 22 Year
  Sex: Female

DRUGS (7)
  1. ARANESP [Suspect]
     Indication: ANAEMIA
     Dosage: 100 MCG, 1 IN 1 WEEKS
  2. PREDNISONE [Concomitant]
  3. FERROUS SULFATE TAB [Concomitant]
  4. ASPIRIN [Concomitant]
  5. INSULIN [Concomitant]
  6. HEPARIN [Concomitant]
  7. METHYLDOPA [Concomitant]

REACTIONS (12)
  - AZOTAEMIA [None]
  - BLOOD PRESSURE INCREASED [None]
  - CAESAREAN SECTION [None]
  - DRUG EXPOSURE DURING PREGNANCY [None]
  - DYSPNOEA [None]
  - EPISTAXIS [None]
  - HAEMOPTYSIS [None]
  - LUNG INFILTRATION [None]
  - PNEUMONIA KLEBSIELLA [None]
  - POST PROCEDURAL COMPLICATION [None]
  - PREMATURE SEPARATION OF PLACENTA [None]
  - PULMONARY ALVEOLAR HAEMORRHAGE [None]
